FAERS Safety Report 5601275-3 (Version None)
Quarter: 2008Q1

REPORT INFORMATION
  Report Type: 
  Country: None (occurrence: None)
  Receive Date: 20080124
  Receipt Date: 20080118
  Transmission Date: 20080703
  Serious: Yes (Life-Threatening, Hospitalization)
  Sender: FDA-Public Use
  Company Number: A0704957A

PATIENT
  Age: 82 Year
  Sex: Male
  Weight: 58 kg

DRUGS (7)
  1. SERETIDE [Suspect]
     Dates: start: 20061201
  2. DIGOXIN [Concomitant]
     Dosage: .5TAB THREE TIMES PER WEEK
     Dates: start: 20040101
  3. SERTRALINE [Concomitant]
     Dates: start: 20080115
  4. AMIODARONE [Concomitant]
     Dates: start: 20030101
  5. WARFARIN [Concomitant]
     Dates: start: 20050101
  6. LOSARTAN [Concomitant]
     Dates: start: 20060101
  7. CILOSTAZOL [Concomitant]
     Dates: start: 20071211

REACTIONS (1)
  - CEREBROVASCULAR ACCIDENT [None]
